FAERS Safety Report 20203455 (Version 3)
Quarter: 2022Q1

REPORT INFORMATION
  Report Type: Report from Study
  Country: RU (occurrence: RU)
  Receive Date: 20211218
  Receipt Date: 20220127
  Transmission Date: 20220423
  Serious: Yes (Other)
  Sender: FDA-Public Use
  Company Number: RU/CL2-95014-002/10046/381

PATIENT

DRUGS (12)
  1. PEGASPARGASE [Suspect]
     Active Substance: PEGASPARGASE
     Indication: B-cell type acute leukaemia
     Dosage: 1375 IU (2500 IU/M?), ON DAY 3
     Route: 042
     Dates: start: 20211025, end: 20211025
  2. TN UNSPECIFIED [Concomitant]
     Indication: B-cell type acute leukaemia
     Dosage: 10 MG, 1X/WEEK
     Route: 037
     Dates: start: 20211022, end: 20211105
  3. TN UNSPECIFIED [Concomitant]
     Indication: B-cell type acute leukaemia
     Dosage: 40 MG, 1X/WEEK
     Route: 037
     Dates: start: 20211022, end: 20211105
  4. TN UNSPECIFIED [Concomitant]
     Indication: B-cell type acute leukaemia
     Dosage: 2 MG, 1X/WEEK
     Route: 037
     Dates: start: 20211022
  5. TN UNSPECIFIED [Concomitant]
     Dosage: 0.4 MG, BID
     Route: 051
     Dates: start: 20211022
  6. TN UNSPECIFIED [Concomitant]
     Indication: B-cell type acute leukaemia
     Dosage: 0.8 MG, QD
     Route: 051
     Dates: start: 20211029, end: 20211029
  7. TN UNSPECIFIED [Concomitant]
     Indication: B-cell type acute leukaemia
     Dosage: 24.7 MG, QD
     Route: 051
     Dates: start: 20211029, end: 20211029
  8. SULPERAZONE [Concomitant]
     Active Substance: CEFOPERAZONE SODIUM\SULBACTAM SODIUM
     Indication: Infection prophylaxis
     Dosage: 400 MG, TID
     Route: 051
     Dates: start: 20211021
  9. TN UNSPECIFIED [Concomitant]
     Indication: Prophylaxis
     Dosage: 0.6 ML, PRN
     Route: 051
     Dates: start: 20211021, end: 20211026
  10. TN UNSPECIFIED [Concomitant]
     Indication: Oedema
  11. TN UNSPECIFIED [Concomitant]
     Indication: Prophylaxis
     Dosage: 50 MG, TID
     Route: 048
     Dates: start: 20211021, end: 20211028
  12. TN UNSPECIFIED [Concomitant]
     Indication: Tumour lysis syndrome

REACTIONS (5)
  - Aspartate aminotransferase increased [Not Recovered/Not Resolved]
  - Hepatomegaly [Not Recovered/Not Resolved]
  - Alanine aminotransferase increased [Not Recovered/Not Resolved]
  - Platelet count decreased [Not Recovered/Not Resolved]
  - White blood cell count decreased [Not Recovered/Not Resolved]

NARRATIVE: CASE EVENT DATE: 20211026
